FAERS Safety Report 16860655 (Version 1)
Quarter: 2019Q3

REPORT INFORMATION
  Report Type: Spontaneous
  Country: US (occurrence: US)
  Receive Date: 20190927
  Receipt Date: 20190927
  Transmission Date: 20191005
  Serious: Yes (Hospitalization)
  Sender: FDA-Public Use
  Company Number: US-GENERICUS, INC.-2019GNR00021

PATIENT
  Age: 12 Year
  Sex: Female
  Weight: 35.68 kg

DRUGS (1)
  1. TOBRAMYCIN. [Suspect]
     Active Substance: TOBRAMYCIN
     Indication: CYSTIC FIBROSIS
     Dosage: 300 MG, 2X/DAY FOR 28 DAYS ON AND 28 DAYS OFF
     Dates: start: 20190529

REACTIONS (1)
  - Pneumonia [Recovered/Resolved]

NARRATIVE: CASE EVENT DATE: 201905
